FAERS Safety Report 5237535-8 (Version None)
Quarter: 2007Q1

REPORT INFORMATION
  Report Type: 
  Country: None (occurrence: None)
  Receive Date: 20070213
  Receipt Date: 20070206
  Transmission Date: 20070707
  Serious: Yes (Hospitalization, Other)
  Sender: FDA-Public Use
  Company Number: US-PFIZER INC-2006151455

PATIENT
  Sex: Female
  Weight: 54.9 kg

DRUGS (4)
  1. ACCUPRIL [Suspect]
     Indication: HYPERTENSION
     Route: 048
     Dates: start: 20030101, end: 20061129
  2. ANAESTHETICS [Concomitant]
     Indication: SURGERY
     Dates: start: 20051001, end: 20051001
  3. ZYRTEC [Concomitant]
  4. ALBUTEROL [Concomitant]
     Route: 055

REACTIONS (7)
  - CHAPPED LIPS [None]
  - DYSPNOEA [None]
  - FEELING HOT [None]
  - HEART RATE INCREASED [None]
  - LOWER LIMB FRACTURE [None]
  - THROAT IRRITATION [None]
  - TONGUE OEDEMA [None]
